FAERS Safety Report 5141567-8 (Version None)
Quarter: 2006Q4

REPORT INFORMATION
  Report Type: 
  Country: None (occurrence: None)
  Receive Date: 20061030
  Receipt Date: 20061030
  Transmission Date: 20070319
  Serious: No
  Sender: FDA-Public Use
  Company Number: None

PATIENT
  Sex: Female

DRUGS (1)
  1. N-ACETYCYSTEINE [Suspect]
     Indication: OVERDOSE
     Dosage: 50 MG/KG IN 500 ML'S  OF D 5% GIVEN OVER 4 HOURS IV
     Route: 042
     Dates: start: 20061022, end: 20061023

REACTIONS (1)
  - RASH [None]
